FAERS Safety Report 6984198-7 (Version None)
Quarter: 2010Q3

REPORT INFORMATION
  Report Type: 
  Country: None (occurrence: None)
  Receive Date: 20100915
  Receipt Date: 20100907
  Transmission Date: 20110219
  Serious: Yes (Hospitalization)
  Sender: FDA-Public Use
  Company Number: US-BIOGENIDEC-2008BI009499

PATIENT
  Sex: Female

DRUGS (8)
  1. AVONEX [Suspect]
     Indication: MULTIPLE SCLEROSIS
     Route: 030
     Dates: start: 19980704
  2. NEXIUM [Concomitant]
     Indication: PRODUCT USED FOR UNKNOWN INDICATION
  3. DOCUSATE [Concomitant]
     Indication: PRODUCT USED FOR UNKNOWN INDICATION
  4. PREDNISONE [Concomitant]
     Indication: PRODUCT USED FOR UNKNOWN INDICATION
  5. LEVAQUIN [Concomitant]
     Indication: PRODUCT USED FOR UNKNOWN INDICATION
  6. NORVASC [Concomitant]
     Indication: PRODUCT USED FOR UNKNOWN INDICATION
  7. FLUOXETINE [Concomitant]
     Indication: PRODUCT USED FOR UNKNOWN INDICATION
  8. MEDICATION (NOS) [Concomitant]

REACTIONS (33)
  - AMNESIA [None]
  - AORTIC THROMBOSIS [None]
  - ARTERIAL RUPTURE [None]
  - ARTERIOSCLEROSIS [None]
  - ARTHRALGIA [None]
  - CATHETER SITE ERYTHEMA [None]
  - CHRONIC OBSTRUCTIVE PULMONARY DISEASE [None]
  - CONVULSION [None]
  - DECUBITUS ULCER [None]
  - DELIRIUM [None]
  - DENTAL CARIES [None]
  - DEPRESSION [None]
  - DISORIENTATION [None]
  - DRUG INTERACTION [None]
  - DRY SKIN [None]
  - ENDOTRACHEAL INTUBATION COMPLICATION [None]
  - ESCHERICHIA INFECTION [None]
  - GANGRENE [None]
  - HYPOXIA [None]
  - ILIAC ARTERY THROMBOSIS [None]
  - INTERSTITIAL LUNG DISEASE [None]
  - MULTIPLE SCLEROSIS [None]
  - MUSCLE SPASMS [None]
  - ONYCHOMADESIS [None]
  - PERIPHERAL ISCHAEMIA [None]
  - POOR PERIPHERAL CIRCULATION [None]
  - POST PROCEDURAL COMPLICATION [None]
  - RECTAL HAEMORRHAGE [None]
  - RENAL FAILURE ACUTE [None]
  - RESPIRATORY FAILURE [None]
  - RHABDOMYOLYSIS [None]
  - SEVERE ACUTE RESPIRATORY SYNDROME [None]
  - THROMBOSIS [None]
